FAERS Safety Report 21944492 (Version 1)
Quarter: 2023Q1

REPORT INFORMATION
  Report Type: Other
  Country: None (occurrence: SG)
  Receive Date: 20230202
  Receipt Date: 20230202
  Transmission Date: 20230417
  Serious: Yes (Hospitalization, Other)
  Sender: FDA-Public Use
  Company Number: SG-Spectra Medical Devices, LLC-2137403

PATIENT
  Age: 51 Year
  Sex: Male
  Weight: 98 kg

DRUGS (2)
  1. LIDOCAINE HYDROCHLORIDE ANHYDROUS [Suspect]
     Active Substance: LIDOCAINE HYDROCHLORIDE ANHYDROUS
     Indication: Anaesthesia
     Route: 065
  2. BUPIVACAINE [Suspect]
     Active Substance: BUPIVACAINE
     Route: 065

REACTIONS (2)
  - Respiratory distress [Recovering/Resolving]
  - Phrenic nerve paralysis [Recovering/Resolving]
